FAERS Safety Report 10694968 (Version 2)
Quarter: 2015Q1

REPORT INFORMATION
  Report Type: Spontaneous
  Country: US (occurrence: None)
  Receive Date: 20150105
  Receipt Date: 20150127
  Transmission Date: 20150721
  Serious: No
  Sender: FDA-Public Use
  Company Number: 2014VER00382

PATIENT
  Age: 16 Year
  Sex: Male

DRUGS (1)
  1. MYORISAN [Suspect]
     Active Substance: ISOTRETINOIN
     Dates: start: 20140821

REACTIONS (2)
  - Impaired healing [None]
  - Orthopaedic procedure [None]
